FAERS Safety Report 10639566 (Version 2)
Quarter: 2014Q4

REPORT INFORMATION
  Report Type: Report from Study
  Country: PL (occurrence: PL)
  Receive Date: 20141209
  Receipt Date: 20141224
  Transmission Date: 20150529
  Serious: Yes (Hospitalization)
  Sender: FDA-Public Use
  Company Number: PL-ROCHE-1500152

PATIENT
  Age: 67 Year
  Sex: Male

DRUGS (27)
  1. OBINUTUZUMAB [Suspect]
     Active Substance: OBINUTUZUMAB
     Indication: CHRONIC LYMPHOCYTIC LEUKAEMIA
     Dosage: FREQUENCY AS PER PROTOCOL: 1000MG SPLIT OVER D1/D2, 1000MG ON D8, D15 OF CYCLE 1. 1000MG ON D1 OF C2
     Route: 042
     Dates: start: 20141028, end: 20141028
  2. OBINUTUZUMAB [Suspect]
     Active Substance: OBINUTUZUMAB
     Dosage: FREQUENCY AS PER PROTOCOL: 1000MG SPLIT OVER D1/D2, 1000MG ON D8, D15 OF CYCLE 1. 1000MG ON D1 OF C2
     Route: 042
     Dates: start: 20141029, end: 20141029
  3. DIPHERGAN [Concomitant]
     Route: 048
     Dates: start: 20141125, end: 20141125
  4. ONDANSETRON [Concomitant]
     Active Substance: ONDANSETRON
     Route: 042
     Dates: start: 20141125, end: 20141126
  5. BENDAMUSTINE [Suspect]
     Active Substance: BENDAMUSTINE
     Dosage: FREQUENCY AS PER PROTOCOL: 90MG/M2 ?C1D2. LAST DOSE PRIOR TO ACUTE KIDNEY INJURY ON 26/NOV/2014.
     Route: 042
     Dates: start: 20141029, end: 20141029
  6. PARACETAMOL [Concomitant]
     Active Substance: ACETAMINOPHEN
     Indication: PROPHYLAXIS
     Route: 048
     Dates: start: 20141028, end: 20141029
  7. PARACETAMOL [Concomitant]
     Active Substance: ACETAMINOPHEN
     Route: 048
     Dates: start: 20141104, end: 20141104
  8. MILURIT [Concomitant]
     Active Substance: ALLOPURINOL
     Indication: PROPHYLAXIS
     Route: 048
     Dates: start: 20141027, end: 20141027
  9. MILURIT [Concomitant]
     Active Substance: ALLOPURINOL
     Route: 048
     Dates: start: 20141030, end: 20141124
  10. MILURIT [Concomitant]
     Active Substance: ALLOPURINOL
     Route: 048
     Dates: start: 20141129
  11. OBINUTUZUMAB [Suspect]
     Active Substance: OBINUTUZUMAB
     Dosage: FREQUENCY AS PER PROTOCOL: 1000MG SPLIT OVER D1/D2, 1000MG ON D8, D15 OF CYCLE 1. 1000MG ON D1 OF C2
     Route: 042
     Dates: start: 20141104, end: 20141104
  12. OBINUTUZUMAB [Suspect]
     Active Substance: OBINUTUZUMAB
     Dosage: FREQUENCY AS PER PROTOCOL: 1000MG SPLIT OVER D1/D2, 1000MG ON D8, D15 OF CYCLE 1. 1000MG ON D1 OF C2
     Route: 042
     Dates: start: 20141112, end: 20141112
  13. EUTHYROX [Concomitant]
     Active Substance: LEVOTHYROXINE SODIUM
     Indication: HYPOTHYROIDISM
     Dosage: DOSE: 125 UG
     Route: 048
     Dates: start: 2007
  14. DIPHERGAN [Concomitant]
     Route: 048
     Dates: start: 20141104, end: 20141104
  15. DEXAMETHASON [Concomitant]
     Active Substance: DEXAMETHASONE
     Indication: PROPHYLAXIS
     Route: 048
     Dates: start: 20141027, end: 20141027
  16. FUROSEMIDUM [Concomitant]
     Active Substance: FUROSEMIDE
     Indication: PROPHYLAXIS
     Route: 042
     Dates: start: 20141027, end: 20141028
  17. ONDANSETRON [Concomitant]
     Active Substance: ONDANSETRON
     Indication: PROPHYLAXIS
     Route: 042
     Dates: start: 20141028, end: 20141029
  18. DEXAVEN [Concomitant]
     Active Substance: DEXAMETHASONE
     Indication: PROPHYLAXIS
     Route: 042
     Dates: start: 20141028, end: 20141029
  19. OBINUTUZUMAB [Suspect]
     Active Substance: OBINUTUZUMAB
     Dosage: FREQUENCY AS PER PROTOCOL: 1000MG SPLIT OVER D1/D2, 1000MG ON D8, D15 OF CYCLE 1. 1000MG ON D1 OF C2
     Route: 042
     Dates: start: 20141125, end: 20141125
  20. BENDAMUSTINE [Suspect]
     Active Substance: BENDAMUSTINE
     Dosage: FREQUENCY AS PER PROTOCOL: 90MG/M2 ?C2D2. LAST DOSE PRIOR TO ACUTE KIDNEY INJURY ON 26/NOV/2014.
     Route: 042
     Dates: start: 20141126, end: 20141126
  21. AMLODIPINE [Concomitant]
     Active Substance: AMLODIPINE BESYLATE
     Route: 048
     Dates: start: 2004
  22. DIPHERGAN [Concomitant]
     Indication: PROPHYLAXIS
     Route: 048
     Dates: start: 20141028, end: 20141029
  23. BENDAMUSTINE [Suspect]
     Active Substance: BENDAMUSTINE
     Indication: CHRONIC LYMPHOCYTIC LEUKAEMIA
     Dosage: FREQUENCY AS PER PROTOCOL: 90MG/M2. LIQUID CONCENTRATE 168MG/500ML?C1D1. LAST DOSE PRIOR TO ACUTE KI
     Route: 042
     Dates: start: 20141028, end: 20141028
  24. BENDAMUSTINE [Suspect]
     Active Substance: BENDAMUSTINE
     Dosage: FREQUENCY AS PER PROTOCOL: 90MG/M2 ?C2D1. LAST DOSE PRIOR TO ACUTE KIDNEY INJURY ON 26/NOV/2014.
     Route: 042
     Dates: start: 20141125, end: 20141125
  25. PARACETAMOL [Concomitant]
     Active Substance: ACETAMINOPHEN
     Route: 048
     Dates: start: 20141112, end: 20141112
  26. PARACETAMOL [Concomitant]
     Active Substance: ACETAMINOPHEN
     Route: 048
     Dates: start: 20141125, end: 20141125
  27. POLPRAZOL [Concomitant]
     Active Substance: OMEPRAZOLE
     Indication: PROPHYLAXIS
     Route: 048
     Dates: start: 20141028, end: 20141029

REACTIONS (1)
  - Acute kidney injury [Recovered/Resolved]

NARRATIVE: CASE EVENT DATE: 20141126
